FAERS Safety Report 4355808-8 (Version None)
Quarter: 2004Q2

REPORT INFORMATION
  Report Type: 
  Country: None (occurrence: None)
  Receive Date: 20040505
  Receipt Date: 20040422
  Transmission Date: 20050107
  Serious: Yes (Death, Other)
  Sender: FDA-Public Use
  Company Number: 2004027749

PATIENT
  Sex: Male
  Weight: 122.4712 kg

DRUGS (1)
  1. ZOLOFT [Suspect]
     Indication: ILL-DEFINED DISORDER

REACTIONS (2)
  - CARPAL TUNNEL DECOMPRESSION [None]
  - DROWNING [None]
